FAERS Safety Report 16007267 (Version 1)
Quarter: 2019Q1

REPORT INFORMATION
  Report Type: Spontaneous
  Country: US (occurrence: US)
  Receive Date: 20190226
  Receipt Date: 20190226
  Transmission Date: 20190418
  Serious: Yes (Other)
  Sender: FDA-Public Use
  Company Number: US-ALLERGAN-1907748US

PATIENT
  Age: 50 Year
  Sex: Female
  Weight: 48 kg

DRUGS (3)
  1. AMLODIPINE [Suspect]
     Active Substance: AMLODIPINE BESYLATE
     Indication: PRODUCT USED FOR UNKNOWN INDICATION
     Dosage: 5 MG, UNK
     Route: 065
  2. XELJANZ [Suspect]
     Active Substance: TOFACITINIB CITRATE
     Indication: PRODUCT USED FOR UNKNOWN INDICATION
     Dosage: 5 MG, BID
     Route: 065
     Dates: start: 201808, end: 201901
  3. ARMOUR THYROID [Suspect]
     Active Substance: THYROID, PORCINE
     Indication: PRODUCT USED FOR UNKNOWN INDICATION
     Dosage: 2.5 MG, QD
     Route: 065

REACTIONS (7)
  - Cholelithiasis [Unknown]
  - Appendix disorder [Unknown]
  - Hepatic enzyme abnormal [Unknown]
  - Colonoscopy [Unknown]
  - Incorrect dose administered [Unknown]
  - Furuncle [Unknown]
  - Nausea [Unknown]

NARRATIVE: CASE EVENT DATE: 2018
